FAERS Safety Report 19305492 (Version 5)
Quarter: 2022Q2

REPORT INFORMATION
  Report Type: Spontaneous
  Country: US (occurrence: US)
  Receive Date: 20210525
  Receipt Date: 20220411
  Transmission Date: 20220721
  Serious: Yes (Hospitalization, Other)
  Sender: FDA-Public Use
  Company Number: US-PFIZER INC-2021556081

PATIENT
  Age: 63 Year
  Sex: Female

DRUGS (3)
  1. XELJANZ [Suspect]
     Active Substance: TOFACITINIB CITRATE
     Indication: Rheumatoid arthritis
     Dosage: 5 MG, 2X/DAY
     Route: 048
     Dates: start: 2020, end: 202010
  2. XELJANZ [Suspect]
     Active Substance: TOFACITINIB CITRATE
     Dosage: 5 MG, 2X/DAY
     Route: 048
     Dates: start: 202102
  3. COVID-19 VACCINE [Concomitant]
     Indication: COVID-19 immunisation
     Dosage: UNK, SINGLE

REACTIONS (8)
  - Intervertebral disc disorder [Unknown]
  - Nerve compression [Unknown]
  - Hypertension [Unknown]
  - Spinal operation [Unknown]
  - Condition aggravated [Unknown]
  - Arthralgia [Unknown]
  - Malaise [Unknown]
  - Heart rate increased [Unknown]

NARRATIVE: CASE EVENT DATE: 20211029
